FAERS Safety Report 7003452-6 (Version None)
Quarter: 2010Q3

REPORT INFORMATION
  Report Type: 
  Country: None (occurrence: None)
  Receive Date: 20100920
  Receipt Date: 20100907
  Transmission Date: 20110219
  Serious: Yes (Hospitalization)
  Sender: FDA-Public Use
  Company Number: CH-WATSON-2010-12202

PATIENT
  Age: 60 Year
  Sex: Male

DRUGS (1)
  1. VERAPAMIL HCL [Suspect]
     Indication: SUPRAVENTRICULAR TACHYCARDIA
     Dosage: 480 MG (6-80MG TABS OVER 6 HOURS)
     Route: 048

REACTIONS (2)
  - CARDIOGENIC SHOCK [None]
  - OVERDOSE [None]
